FAERS Safety Report 12653960 (Version 2)
Quarter: 2016Q3

REPORT INFORMATION
  Report Type: Spontaneous
  Country: CA (occurrence: CA)
  Receive Date: 20160816
  Receipt Date: 20160822
  Transmission Date: 20161109
  Serious: Yes (Death, Life-Threatening)
  Sender: FDA-Public Use
  Company Number: CA-ROCHE-1813892

PATIENT
  Sex: Female

DRUGS (6)
  1. FOLIC ACID. [Concomitant]
     Active Substance: FOLIC ACID
     Dosage: 6/7 DAYS
     Route: 048
  2. RITUXAN [Suspect]
     Active Substance: RITUXIMAB
     Indication: VASCULITIS
     Route: 065
  3. SYNTHROID [Concomitant]
     Active Substance: LEVOTHYROXINE SODIUM
  4. SEPTRA DS [Concomitant]
     Active Substance: SULFAMETHOXAZOLE\TRIMETHOPRIM
     Indication: ANTIFUNGAL PROPHYLAXIS
     Dosage: 1 TAB (3 TIMES A WEEK) M, W AND F.
     Route: 048
     Dates: start: 20160219
  5. ACTONEL [Concomitant]
     Active Substance: RISEDRONATE SODIUM
     Indication: OSTEOPOROSIS PROPHYLAXIS
     Route: 048
     Dates: start: 20160219
  6. ELIQUIS [Concomitant]
     Active Substance: APIXABAN

REACTIONS (3)
  - Septic shock [Fatal]
  - Respiratory failure [Fatal]
  - Blastomycosis [Unknown]
